FAERS Safety Report 17909269 (Version 2)
Quarter: 2020Q2

REPORT INFORMATION
  Report Type: Spontaneous
  Country: JP (occurrence: JP)
  Receive Date: 20200618
  Receipt Date: 20200630
  Transmission Date: 20200714
  Serious: Yes (Life-Threatening, Hospitalization, Other)
  Sender: FDA-Public Use
  Company Number: JP-AMGEN-JPNSP2020094238

PATIENT
  Age: 84 Year

DRUGS (3)
  1. EVENITY [Suspect]
     Active Substance: ROMOSOZUMAB-AQQG
     Indication: OSTEOPOROSIS
     Dosage: 210 MILLIGRAM
     Route: 058
     Dates: start: 20200225, end: 20200425
  2. EDIROL [Concomitant]
     Active Substance: ELDECALCITOL
     Dosage: UNK
     Dates: start: 20200225
  3. ONBREZ [Concomitant]
     Active Substance: INDACATEROL
     Dosage: UNK

REACTIONS (2)
  - Myocardial infarction [Recovered/Resolved]
  - Coronary artery thrombosis [Unknown]

NARRATIVE: CASE EVENT DATE: 20200429
